FAERS Safety Report 4876095-8 (Version None)
Quarter: 2006Q1

REPORT INFORMATION
  Report Type: 
  Country: None (occurrence: None)
  Receive Date: 20060106
  Receipt Date: 20060106
  Transmission Date: 20060701
  Serious: Yes (Other)
  Sender: FDA-Public Use
  Company Number: None

PATIENT
  Age: 53 Year
  Sex: Male
  Weight: 78.9259 kg

DRUGS (1)
  1. LANTUS [Suspect]
     Indication: DIABETES MELLITUS
     Dosage: 30 UNITS DAILY ^INTRADERMAL^
     Route: 023

REACTIONS (2)
  - HIP DISARTICULATION [None]
  - MALIGNANT FIBROUS HISTIOCYTOMA [None]
